FAERS Safety Report 17108630 (Version 1)
Quarter: 2019Q4

REPORT INFORMATION
  Report Type: Spontaneous
  Country: CZ (occurrence: CZ)
  Receive Date: 20191203
  Receipt Date: 20191203
  Transmission Date: 20200122
  Serious: Yes (Other)
  Sender: FDA-Public Use
  Company Number: CZ-MYLANLABS-2019M1116665

PATIENT
  Age: 63 Year
  Sex: Male

DRUGS (5)
  1. TIPIRACIL [Concomitant]
     Active Substance: TIPIRACIL
     Indication: NEOPLASM MALIGNANT
     Dosage: UNK
     Dates: end: 201905
  2. CETUXIMAB. [Concomitant]
     Active Substance: CETUXIMAB
     Indication: NEOPLASM MALIGNANT
     Dosage: UNK
  3. OXALIPLATIN. [Suspect]
     Active Substance: OXALIPLATIN
     Indication: NEOPLASM MALIGNANT
     Dosage: UNK
     Route: 042
  4. IRINOTECAN [Suspect]
     Active Substance: IRINOTECAN
     Indication: NEOPLASM MALIGNANT
     Dosage: UNK
     Route: 042
  5. TRIFLURIDINE. [Concomitant]
     Active Substance: TRIFLURIDINE
     Indication: NEOPLASM MALIGNANT
     Dosage: UNK
     Dates: end: 201905

REACTIONS (2)
  - Toxicity to various agents [Recovered/Resolved]
  - Neuropathy peripheral [Recovered/Resolved]
